FAERS Safety Report 4314620-6 (Version None)
Quarter: 2004Q1

REPORT INFORMATION
  Report Type: 
  Country: None (occurrence: None)
  Receive Date: 20040308
  Receipt Date: 20040120
  Transmission Date: 20041129
  Serious: Yes (Hospitalization)
  Sender: FDA-Public Use
  Company Number: 04P-034-0247897-00

PATIENT
  Age: 3 Month
  Sex: Male

DRUGS (2)
  1. ERYTHROMYCIN ETHYLSUCCINATE ORAL SUSPENSION (E.E.S.) (ERYTHROMYCIN [Suspect]
     Indication: BRONCHITIS ACUTE
     Dosage: 1.3 ML, 3 IN 1 D, PER ORAL
     Route: 048
     Dates: start: 20040104, end: 20040105
  2. DOMPERIDONE [Concomitant]

REACTIONS (2)
  - CONVULSION [None]
  - EPILEPSY [None]
